FAERS Safety Report 17554248 (Version 1)
Quarter: 2020Q1

REPORT INFORMATION
  Report Type: Spontaneous
  Country: US (occurrence: US)
  Receive Date: 20200318
  Receipt Date: 20200318
  Transmission Date: 20200409
  Serious: Yes (Hospitalization, Other)
  Sender: FDA-Public Use
  Company Number: US-SA-2020SA065946

PATIENT
  Age: 68 Year
  Sex: Female

DRUGS (1)
  1. LANTUS SOLOSTAR [Suspect]
     Active Substance: INSULIN GLARGINE
     Dosage: 10-12 UNITS,QD
     Route: 065
     Dates: start: 1985

REACTIONS (3)
  - Transient ischaemic attack [Unknown]
  - Memory impairment [Unknown]
  - Throat cancer [Unknown]
